FAERS Safety Report 13982760 (Version 1)
Quarter: 2017Q3

REPORT INFORMATION
  Report Type: Spontaneous
  Country: US (occurrence: US)
  Receive Date: 20170918
  Receipt Date: 20170918
  Transmission Date: 20171128
  Serious: No
  Sender: FDA-Public Use
  Company Number: None

PATIENT
  Age: 55 Year
  Sex: Female
  Weight: 74.7 kg

DRUGS (9)
  1. NASAL SPRAY [Concomitant]
     Active Substance: UNSPECIFIED INGREDIENT
  2. OMEGA 3 [Concomitant]
     Active Substance: OMEGA-3 FATTY ACIDS
  3. IBUPROFEN. [Concomitant]
     Active Substance: IBUPROFEN
  4. METFORMIN [Concomitant]
     Active Substance: METFORMIN HYDROCHLORIDE
  5. PRO-AIR SPREY [Concomitant]
  6. VIT D WITH CALCIUM [Concomitant]
  7. LEVOTHYROXINE. [Concomitant]
     Active Substance: LEVOTHYROXINE
  8. ALENDRONATE SODIUM. [Suspect]
     Active Substance: ALENDRONATE SODIUM
     Indication: OSTEOPOROSIS PROPHYLAXIS
     Dates: start: 20170917, end: 20170917
  9. MULTI VITAMIN [Concomitant]
     Active Substance: VITAMINS

REACTIONS (9)
  - Abdominal pain [None]
  - Pyrexia [None]
  - Influenza like illness [None]
  - Arthralgia [None]
  - Diarrhoea [None]
  - Myalgia [None]
  - Fatigue [None]
  - Gluten sensitivity [None]
  - Muscle spasms [None]

NARRATIVE: CASE EVENT DATE: 20170917
